FAERS Safety Report 9007533 (Version 1)
Quarter: 2013Q1

REPORT INFORMATION
  Report Type: Spontaneous
  Country: GB (occurrence: GB)
  Receive Date: 20130111
  Receipt Date: 20130111
  Transmission Date: 20140127
  Serious: Yes (Death)
  Sender: FDA-Public Use
  Company Number: GB-ELI_LILLY_AND_COMPANY-GB201301002692

PATIENT
  Sex: 0

DRUGS (2)
  1. GEMCITABINE HYDROCHLORIDE [Suspect]
     Indication: NEOPLASM
     Dosage: 1000 MG/M2, OTHER
     Route: 042
  2. PAZOPANIB [Concomitant]
     Dosage: 400 MG, QD
     Route: 048

REACTIONS (1)
  - Pneumonia [Fatal]
